FAERS Safety Report 9708794 (Version 1)
Quarter: 2013Q4

REPORT INFORMATION
  Report Type: Spontaneous
  Country: CH (occurrence: CH)
  Receive Date: 20131125
  Receipt Date: 20131125
  Transmission Date: 20140711
  Serious: Yes (Hospitalization)
  Sender: FDA-Public Use
  Company Number: CH-PFIZER INC-2013332295

PATIENT
  Age: 23 Year
  Sex: Female
  Weight: 76 kg

DRUGS (8)
  1. ZOLOFT [Suspect]
     Dosage: 50 MG, 2X/DAY
     Route: 048
     Dates: end: 201309
  2. CYPRESTA 35 [Suspect]
     Indication: CONTRACEPTION
     Dosage: 1 DF, UNK
     Route: 048
     Dates: end: 20130907
  3. ENTUMIN [Suspect]
     Dosage: 20 MG, 2X/DAY
     Route: 048
     Dates: end: 20130907
  4. TRANXILIUM [Concomitant]
     Dosage: 5 MG, 2X/DAY
     Route: 048
  5. AKINETON [Concomitant]
     Dosage: 2 MG, 2X/DAY
     Route: 048
  6. SEROQUEL [Concomitant]
     Dosage: 100 MG, 3X/DAY
     Route: 048
  7. INDERAL [Concomitant]
     Dosage: 10 MG, 2X/DAY
  8. TIROSINT [Concomitant]
     Dosage: 13 UG, 1X/DAY
     Route: 048

REACTIONS (2)
  - Deep vein thrombosis [Recovering/Resolving]
  - Thrombocytopenia [Recovering/Resolving]
